FAERS Safety Report 4746380-9 (Version None)
Quarter: 2005Q3

REPORT INFORMATION
  Report Type: 
  Country: None (occurrence: None)
  Receive Date: 20050815
  Receipt Date: 20050803
  Transmission Date: 20060218
  Serious: Yes (Death, Other)
  Sender: FDA-Public Use
  Company Number: 2005110867

PATIENT
  Age: 9 Year
  Sex: Female

DRUGS (1)
  1. SOMATROPIN (SOMATROPIN) [Suspect]
     Indication: PRADER-WILLI SYNDROME
     Dosage: SEE IMAGE

REACTIONS (5)
  - BODY MASS INDEX DECREASED [None]
  - GENERAL PHYSICAL HEALTH DETERIORATION [None]
  - HYPOVENTILATION [None]
  - RESPIRATORY TRACT INFECTION [None]
  - SLEEP APNOEA SYNDROME [None]
